FAERS Safety Report 20003224 (Version 1)
Quarter: 2021Q4

REPORT INFORMATION
  Report Type: Spontaneous
  Country: US (occurrence: US)
  Receive Date: 20211027
  Receipt Date: 20211027
  Transmission Date: 20220303
  Serious: Yes (Other)
  Sender: FDA-Public Use
  Company Number: 2021A783683

PATIENT
  Age: 40 Year
  Sex: Male

DRUGS (5)
  1. OLAPARIB [Suspect]
     Active Substance: OLAPARIB
     Indication: Hormone-refractory prostate cancer
     Route: 048
     Dates: start: 2021
  2. ADT/DOCETAXEL [Concomitant]
     Indication: Bone disorder
     Route: 065
     Dates: start: 2015
  3. CARBOPLATIN [Concomitant]
     Active Substance: CARBOPLATIN
     Route: 065
     Dates: start: 2018
  4. ABIRATERONE. [Concomitant]
     Active Substance: ABIRATERONE ACETATE
     Route: 065
     Dates: start: 2020
  5. CABAZITAXEL/PEMBROLIZUMAB [Concomitant]
     Route: 065

REACTIONS (5)
  - Spinal laminectomy [Unknown]
  - Bone lesion [Unknown]
  - Computerised tomogram abnormal [Unknown]
  - Prostatic specific antigen [Unknown]
  - Prostatic specific antigen increased [Unknown]
